FAERS Safety Report 5206100-0 (Version None)
Quarter: 2007Q1

REPORT INFORMATION
  Report Type: 
  Country: None (occurrence: None)
  Receive Date: 20070108
  Receipt Date: 20061231
  Transmission Date: 20070707
  Serious: Yes (Other)
  Sender: FDA-Public Use
  Company Number: 2007SP000095

PATIENT
  Age: 74 Year
  Sex: Female
  Weight: 81.6475 kg

DRUGS (2)
  1. INTEGRILIN [Suspect]
     Indication: ACUTE CORONARY SYNDROME
     Dosage: 20 MG; ONCE; INBO
     Route: 040
     Dates: start: 20061228, end: 20061228
  2. PHENERGAN [Suspect]
     Dates: start: 20061228

REACTIONS (2)
  - BRAIN DEATH [None]
  - CARDIOPULMONARY FAILURE [None]
